FAERS Safety Report 5431202-3 (Version None)
Quarter: 2007Q3

REPORT INFORMATION
  Report Type: 
  Country: None (occurrence: None)
  Receive Date: 20070830
  Receipt Date: 20070626
  Transmission Date: 20080115
  Serious: No
  Sender: FDA-Public Use
  Company Number: A0645037A

PATIENT
  Age: 41 Year
  Sex: Female
  Weight: 96.4 kg

DRUGS (6)
  1. WELLBUTRIN XL [Suspect]
     Indication: DEPRESSION
     Dosage: 450MG PER DAY
     Route: 048
     Dates: start: 20050213
  2. VISTARIL [Concomitant]
     Indication: ANXIETY
     Route: 048
     Dates: start: 20061221
  3. DESYREL [Concomitant]
     Indication: INSOMNIA
     Dates: start: 20061115
  4. ZELNORM [Concomitant]
  5. REQUIP [Concomitant]
  6. TYLENOL (CAPLET) [Concomitant]

REACTIONS (4)
  - DRUG INEFFECTIVE [None]
  - IRRITABILITY [None]
  - MENORRHAGIA [None]
  - UTERINE LEIOMYOMA [None]
